FAERS Safety Report 8140553-3 (Version None)
Quarter: 2012Q1

REPORT INFORMATION
  Report Type: 
  Country: None (occurrence: None)
  Receive Date: 20120216
  Receipt Date: 20120215
  Transmission Date: 20120608
  Serious: Yes (Other)
  Sender: FDA-Public Use
  Company Number: NO-PFIZER INC-2012006493

PATIENT
  Age: 47 Year
  Sex: Female

DRUGS (3)
  1. VENLAFAXINE [Concomitant]
     Dosage: 75 MG, 1X/DAY
  2. REMERON-S [Concomitant]
     Dosage: 30 MG, 1X/DAY
  3. LYRICA [Suspect]
     Dosage: 150 MG + 300 MG

REACTIONS (2)
  - ALANINE AMINOTRANSFERASE INCREASED [None]
  - LIVER FUNCTION TEST ABNORMAL [None]
